FAERS Safety Report 8592859 (Version 2)
Quarter: 2013Q2

REPORT INFORMATION
  Report Type: Spontaneous
  Country: TR (occurrence: TR)
  Receive Date: 20120604
  Receipt Date: 20130513
  Transmission Date: 20140414
  Serious: Yes (Other)
  Sender: FDA-Public Use
  Company Number: TR-AMGEN-TURSP2012021324

PATIENT
  Age: 35 Year
  Sex: Female

DRUGS (3)
  1. ENBREL [Suspect]
     Indication: ANKYLOSING SPONDYLITIS
     Dosage: 50 MG, WEEKLY
     Route: 058
     Dates: start: 200804, end: 20110405
  2. ENBREL [Suspect]
     Dosage: UNK
     Dates: start: 20110405, end: 201112
  3. ENBREL [Suspect]
     Dosage: 25 MG, 2X/WEEK
     Route: 058
     Dates: start: 20120724

REACTIONS (4)
  - Pain [Not Recovered/Not Resolved]
  - Swelling [Recovered/Resolved]
  - Gastric ulcer [Recovering/Resolving]
  - Fungal infection [Recovered/Resolved]
